FAERS Safety Report 8025422-1 (Version None)
Quarter: 2012Q1

REPORT INFORMATION
  Report Type: 
  Country: None (occurrence: None)
  Receive Date: 20120105
  Receipt Date: 20120102
  Transmission Date: 20120608
  Serious: Yes (Hospitalization)
  Sender: FDA-Public Use
  Company Number: FR-CEPHALON-2012000014

PATIENT
  Age: 81 Year
  Sex: Female

DRUGS (6)
  1. LOVENOX [Concomitant]
     Dates: start: 20110708, end: 20110716
  2. MORPHINE SULFATE [Suspect]
     Dates: start: 20110711, end: 20110712
  3. FENTANYL CITRATE [Suspect]
     Route: 002
     Dates: start: 20110708, end: 20110711
  4. DURAGESIC-100 [Suspect]
     Dates: start: 20110708, end: 20110716
  5. OXAZEPAM [Suspect]
     Dates: start: 20110708, end: 20110716
  6. MORPHINE [Suspect]
     Dates: start: 20110712, end: 20110716

REACTIONS (4)
  - URTICARIA [None]
  - RENAL FAILURE [None]
  - DRUG HYPERSENSITIVITY [None]
  - EOSINOPHIL COUNT INCREASED [None]
